FAERS Safety Report 21035177 (Version 2)
Quarter: 2025Q2

REPORT INFORMATION
  Report Type: Spontaneous
  Country: US (occurrence: US)
  Receive Date: 20220701
  Receipt Date: 20250506
  Transmission Date: 20250716
  Serious: Yes (Other)
  Sender: BIOMARIN
  Company Number: US-SA-SAC20220610001214

PATIENT

DRUGS (2)
  1. LARONIDASE [Suspect]
     Active Substance: LARONIDASE
     Indication: Mucopolysaccharidosis I
     Dosage: 23.2 MG, QW
     Route: 042
     Dates: start: 20120501
  2. LARONIDASE [Suspect]
     Active Substance: LARONIDASE
     Dosage: 23.2 MG, QW
     Route: 042
     Dates: start: 202104

REACTIONS (4)
  - Glaucoma [Unknown]
  - Stress [Not Recovered/Not Resolved]
  - Panic attack [Not Recovered/Not Resolved]
  - Intervertebral disc protrusion [Unknown]
